FAERS Safety Report 17206456 (Version 2)
Quarter: 2020Q1

REPORT INFORMATION
  Report Type: Spontaneous
  Country: US (occurrence: US)
  Receive Date: 20191227
  Receipt Date: 20200224
  Transmission Date: 20200409
  Serious: No
  Sender: FDA-Public Use
  Company Number: US-BEH-2019110685

PATIENT
  Age: 47 Year
  Sex: Male

DRUGS (2)
  1. HIZENTRA [Suspect]
     Active Substance: HUMAN IMMUNOGLOBULIN G
     Indication: IMMUNODEFICIENCY COMMON VARIABLE
     Dosage: 10 GRAM, QW
     Route: 058
     Dates: start: 20191010
  2. HIZENTRA [Suspect]
     Active Substance: HUMAN IMMUNOGLOBULIN G
     Dosage: 10 GRAM, QW
     Route: 058
     Dates: start: 20191009

REACTIONS (8)
  - Fatigue [Unknown]
  - Chills [Unknown]
  - Dyspnoea [Unknown]
  - Fatigue [Unknown]
  - Peripheral swelling [Unknown]
  - Pain [Unknown]
  - Palpitations [Unknown]
  - Dyspnoea [Unknown]

NARRATIVE: CASE EVENT DATE: 20200210
